FAERS Safety Report 6431393-1 (Version None)
Quarter: 2009Q4

REPORT INFORMATION
  Report Type: 
  Country: None (occurrence: None)
  Receive Date: 20091106
  Receipt Date: 20091028
  Transmission Date: 20100525
  Serious: Yes (Hospitalization, Other)
  Sender: FDA-Public Use
  Company Number: PHHY2009HK46890

PATIENT
  Age: 9 Year
  Sex: Male

DRUGS (6)
  1. CYCLOSPORINE [Suspect]
     Indication: CORD BLOOD TRANSPLANT THERAPY
  2. CYCLOSPORINE [Suspect]
     Indication: GRAFT VERSUS HOST DISEASE
  3. METHYLPREDNISOLONE 4MG TAB [Suspect]
     Indication: GRAFT VERSUS HOST DISEASE
  4. FLUDARABINE [Concomitant]
     Dosage: 30 MG/M2 FOR 4 DAYS
  5. IRRADIATION [Concomitant]
  6. MELPHALAN [Concomitant]
     Dosage: 140 MG/M2, UNK

REACTIONS (8)
  - ABNORMAL BEHAVIOUR [None]
  - BONE MARROW FAILURE [None]
  - CONVULSION [None]
  - ENCEPHALITIS HERPES [None]
  - EPILEPSY [None]
  - GRAFT VERSUS HOST DISEASE [None]
  - HYPONATRAEMIA [None]
  - LYMPHOPENIA [None]
